FAERS Safety Report 8065306-6 (Version None)
Quarter: 2011Q4

REPORT INFORMATION
  Report Type: 
  Country: None (occurrence: None)
  Receive Date: 20111221
  Receipt Date: 20110719
  Transmission Date: 20120403
  Serious: Yes (Hospitalization)
  Sender: FDA-Public Use
  Company Number: PHHY2011US57678

PATIENT
  Age: 78 Year
  Sex: Female

DRUGS (4)
  1. EXJADE [Suspect]
     Indication: SICKLE CELL ANAEMIA
     Dosage: 500 MG, Q96H, ORAL ; 500 MG DAILY, ORAL
     Route: 048
     Dates: start: 20080201
  2. EXJADE [Suspect]
     Indication: IRON OVERLOAD
     Dosage: 500 MG, Q96H, ORAL ; 500 MG DAILY, ORAL
     Route: 048
     Dates: start: 20080201
  3. EXJADE [Suspect]
     Indication: SICKLE CELL ANAEMIA
     Dosage: 500 MG, Q96H, ORAL ; 500 MG DAILY, ORAL
     Route: 048
     Dates: start: 20071030
  4. EXJADE [Suspect]
     Indication: IRON OVERLOAD
     Dosage: 500 MG, Q96H, ORAL ; 500 MG DAILY, ORAL
     Route: 048
     Dates: start: 20071030

REACTIONS (3)
  - ABDOMINAL PAIN UPPER [None]
  - ABDOMINAL DISTENSION [None]
  - DIARRHOEA [None]
